FAERS Safety Report 11682116 (Version 1)
Quarter: 2015Q4

REPORT INFORMATION
  Report Type: Spontaneous
  Country: JP (occurrence: JP)
  Receive Date: 20151029
  Receipt Date: 20151029
  Transmission Date: 20160304
  Serious: Yes (Other)
  Sender: FDA-Public Use
  Company Number: JP-WARNER CHILCOTT, LLC-1043534

PATIENT
  Age: 80 Year
  Sex: Female

DRUGS (1)
  1. ACTONEL [Suspect]
     Active Substance: RISEDRONATE SODIUM
     Route: 048
     Dates: start: 201506

REACTIONS (6)
  - Dyspepsia [Unknown]
  - Diarrhoea [Unknown]
  - VIIth nerve paralysis [Unknown]
  - Neurological eyelid disorder [Unknown]
  - Constipation [Unknown]
  - Abdominal distension [Unknown]
